FAERS Safety Report 7138088-X (Version None)
Quarter: 2010Q4

REPORT INFORMATION
  Report Type: 
  Country: None (occurrence: None)
  Receive Date: 20101206
  Receipt Date: 20101124
  Transmission Date: 20110411
  Serious: Yes (Hospitalization)
  Sender: FDA-Public Use
  Company Number: US-ACTELION-A-NJ2010-41889

PATIENT

DRUGS (1)
  1. BOSENTAN TABLET 62.5 MG US [Suspect]
     Indication: MIXED CONNECTIVE TISSUE DISEASE
     Dosage: 62.5 MG, BID
     Route: 048
     Dates: start: 20101020

REACTIONS (4)
  - ASTHMA [None]
  - CHRONIC OBSTRUCTIVE PULMONARY DISEASE [None]
  - COUGH [None]
  - DYSPNOEA [None]
